FAERS Safety Report 8078297-9 (Version None)
Quarter: 2012Q1

REPORT INFORMATION
  Report Type: 
  Country: None (occurrence: None)
  Receive Date: 20120127
  Receipt Date: 20110207
  Transmission Date: 20120608
  Serious: No
  Sender: FDA-Public Use
  Company Number: PR-ABBOTT-10P-131-0689461-00

PATIENT
  Sex: Male

DRUGS (5)
  1. HUMIRA [Suspect]
     Dosage: 1 INJECTION
     Dates: start: 20101107, end: 20101107
  2. HUMIRA [Suspect]
     Indication: CROHN'S DISEASE
     Dosage: 4 INJECTIONS
     Route: 058
     Dates: start: 20101003, end: 20101003
  3. ALTACE [Concomitant]
     Indication: HYPERTENSION
     Route: 048
  4. HUMIRA [Suspect]
     Dosage: LAST INJECTION
     Dates: start: 20101121
  5. HUMIRA [Suspect]
     Dosage: 2 INJECTIONS
     Dates: start: 20101024, end: 20101024

REACTIONS (1)
  - HEPATIC ENZYME INCREASED [None]
